FAERS Safety Report 9719268 (Version 1)
Quarter: 2013Q4

REPORT INFORMATION
  Report Type: Spontaneous
  Country: CN (occurrence: CN)
  Receive Date: 20131127
  Receipt Date: 20131127
  Transmission Date: 20140711
  Serious: Yes (Death, Hospitalization)
  Sender: FDA-Public Use
  Company Number: PHHY2013CN134718

PATIENT
  Age: 28 Year
  Sex: Male

DRUGS (5)
  1. IMATINIB [Suspect]
     Dosage: 200 MG, PER DAY
  2. IMATINIB [Suspect]
     Dosage: 100 MG, PER DAY
  3. IMATINIB [Suspect]
     Dosage: 400 MG, PER DAY
  4. CYTARABINE [Suspect]
  5. HOMOHARRINGTONINE [Suspect]

REACTIONS (16)
  - Platelet-derived growth factor receptor overexpression [Fatal]
  - Pyrexia [Unknown]
  - Chest discomfort [Unknown]
  - Dyspnoea [Unknown]
  - Anaemia [Unknown]
  - Chest pain [Unknown]
  - Hepatomegaly [Unknown]
  - Splenomegaly [Unknown]
  - Oedema peripheral [Unknown]
  - White blood cell count increased [Unknown]
  - Abdominal distension [Unknown]
  - Eating disorder [Unknown]
  - Contusion [Unknown]
  - Skin haemorrhage [Unknown]
  - Condition aggravated [Unknown]
  - Drug resistance [Unknown]
